FAERS Safety Report 16228508 (Version 1)
Quarter: 2019Q2

REPORT INFORMATION
  Report Type: Spontaneous
  Country: JP (occurrence: JP)
  Receive Date: 20190423
  Receipt Date: 20190423
  Transmission Date: 20190711
  Serious: Yes (Death)
  Sender: FDA-Public Use
  Company Number: JP-BIODELIVERY SCIENCES INTERNATIONAL-2019BDSI0318

PATIENT
  Sex: Male

DRUGS (1)
  1. NALDEMEDINE [Suspect]
     Active Substance: NALDEMEDINE
     Indication: CONSTIPATION
     Route: 048
     Dates: start: 201903

REACTIONS (2)
  - Death [Fatal]
  - Abdominal pain [Recovered/Resolved]

NARRATIVE: CASE EVENT DATE: 201903
